FAERS Safety Report 8659170 (Version 3)
Quarter: 2013Q2

REPORT INFORMATION
  Report Type: Spontaneous
  Country: US (occurrence: US)
  Receive Date: 20120711
  Receipt Date: 20130624
  Transmission Date: 20140414
  Serious: No
  Sender: FDA-Public Use
  Company Number: US-BIOGENIDEC-2012BI023766

PATIENT
  Age: 56 Year
  Sex: Female

DRUGS (3)
  1. AVONEX [Suspect]
     Indication: MULTIPLE SCLEROSIS
     Route: 030
     Dates: start: 19990501
  2. AVONEX [Suspect]
     Indication: MULTIPLE SCLEROSIS
     Route: 030
     Dates: start: 201206
  3. AVONEX [Suspect]
     Indication: MULTIPLE SCLEROSIS
     Route: 030
     Dates: start: 201206

REACTIONS (26)
  - Fall [Recovered/Resolved]
  - Surgery [Recovered/Resolved]
  - Injection site haemorrhage [Recovered/Resolved]
  - Balance disorder [Not Recovered/Not Resolved]
  - Limb injury [Recovered/Resolved]
  - Incision site complication [Not Recovered/Not Resolved]
  - Scar [Not Recovered/Not Resolved]
  - Drug intolerance [Unknown]
  - Incision site infection [Unknown]
  - General symptom [Not Recovered/Not Resolved]
  - Back pain [Recovered/Resolved]
  - Head injury [Recovered/Resolved]
  - Lip injury [Recovered/Resolved]
  - Loss of consciousness [Recovered/Resolved]
  - Laceration [Recovered/Resolved]
  - Post-traumatic neck syndrome [Recovered/Resolved]
  - Underdose [Unknown]
  - Weight decreased [Unknown]
  - Wound [Unknown]
  - Injection site mass [Unknown]
  - Vomiting [Unknown]
  - Injection site abscess [Recovered/Resolved]
  - Fatigue [Not Recovered/Not Resolved]
  - Injection site reaction [Unknown]
  - Neck pain [Recovered/Resolved]
  - Injection site erythema [Unknown]
